FAERS Safety Report 7786873-3 (Version None)
Quarter: 2011Q3

REPORT INFORMATION
  Report Type: 
  Country: None (occurrence: None)
  Receive Date: 20110928
  Receipt Date: 20110928
  Transmission Date: 20111222
  Serious: Yes (Other)
  Sender: FDA-Public Use
  Company Number: None

PATIENT
  Age: 76 Year
  Sex: Female

DRUGS (9)
  1. GLIPIZIDE [Concomitant]
  2. ANASTROZOLE [Concomitant]
  3. SPIRONOLACTONE [Concomitant]
  4. POTASSIUM CHLORIDE [Concomitant]
  5. LETAIRIS [Suspect]
     Indication: PULMONARY ARTERIAL HYPERTENSION
     Dosage: LETAIRIS 5 MG DAILY ORALLY
     Route: 048
     Dates: start: 20110912, end: 20110915
  6. FUROSEMIDE [Concomitant]
  7. ALBUTEROL [Concomitant]
  8. MOMETASONE FUROATE [Concomitant]
  9. MINIPERSS [Concomitant]

REACTIONS (2)
  - FACE OEDEMA [None]
  - OEDEMA PERIPHERAL [None]
